FAERS Safety Report 20787113 (Version 1)
Quarter: 2022Q2

REPORT INFORMATION
  Report Type: Other
  Country: None (occurrence: US)
  Receive Date: 20220505
  Receipt Date: 20220505
  Transmission Date: 20220720
  Serious: Yes (Hospitalization)
  Sender: FDA-Public Use
  Company Number: US-Ajanta Pharma USA Inc.-2128472

PATIENT
  Age: 78 Year
  Sex: Female

DRUGS (10)
  1. METFORMIN HYDROCHLORIDE [Suspect]
     Active Substance: METFORMIN HYDROCHLORIDE
     Indication: Type 2 diabetes mellitus
     Dates: start: 2005
  2. ASPIRIN [Concomitant]
     Active Substance: ASPIRIN
  3. ATORVASTATIN CALCIUM [Concomitant]
     Active Substance: ATORVASTATIN CALCIUM
  4. FAMOTIDINE [Concomitant]
     Active Substance: FAMOTIDINE
  5. INSULIN GLARGINE [Concomitant]
     Active Substance: INSULIN GLARGINE
     Route: 058
  6. INSULIN ASPART [Concomitant]
     Active Substance: INSULIN ASPART
     Route: 058
  7. METOPROLOL TARTRATE [Concomitant]
     Active Substance: METOPROLOL TARTRATE
  8. LOSARTAN [Concomitant]
     Active Substance: LOSARTAN
  9. TORSEMIDE [Concomitant]
     Active Substance: TORSEMIDE
  10. SERTRALINE HYDROCHLORIDE [Concomitant]
     Active Substance: SERTRALINE HYDROCHLORIDE

REACTIONS (2)
  - Blindness transient [Recovered/Resolved]
  - Lactic acidosis [Recovered/Resolved]
